FAERS Safety Report 18966293 (Version 7)
Quarter: 2022Q3

REPORT INFORMATION
  Report Type: Report from Study
  Country: JP (occurrence: JP)
  Receive Date: 20210304
  Receipt Date: 20220930
  Transmission Date: 20221027
  Serious: Yes (Death, Hospitalization)
  Sender: FDA-Public Use
  Company Number: JP-ABBVIE-21K-087-3754964-00

PATIENT
  Age: 69 Year
  Sex: Male
  Weight: 47 kg

DRUGS (6)
  1. CARBIDOPA\LEVODOPA [Suspect]
     Active Substance: CARBIDOPA\LEVODOPA
     Indication: Parkinson^s disease
     Dosage: MD 10 ML, CD 3.7 ML/HR FOR16 HRS, ED 1.0 ML/UNIT FOR 3
     Route: 050
     Dates: start: 20200128, end: 20210926
  2. CARBIDOPA\LEVODOPA [Suspect]
     Active Substance: CARBIDOPA\LEVODOPA
  3. ROPINIROLE HYDROCHLORIDE [Concomitant]
     Active Substance: ROPINIROLE HYDROCHLORIDE
     Indication: Parkinson^s disease
     Route: 062
     Dates: end: 20210926
  4. MAGNESIUM OXIDE [Concomitant]
     Active Substance: MAGNESIUM OXIDE
     Indication: Product used for unknown indication
     Route: 048
  5. REBAMIPIDE [Concomitant]
     Active Substance: REBAMIPIDE
     Indication: Prophylaxis
     Route: 048
  6. SHAKUYAKUKANZOTO [Concomitant]
     Active Substance: HERBALS
     Indication: Product used for unknown indication
     Route: 048
     Dates: end: 20210926

REACTIONS (14)
  - Spinal compression fracture [Unknown]
  - Off label use [Unknown]
  - Device physical property issue [Unknown]
  - Device dislocation [Unknown]
  - Posture abnormal [Unknown]
  - Abnormal behaviour [Not Recovered/Not Resolved]
  - Cognitive disorder [Unknown]
  - Mobility decreased [Unknown]
  - Muscle rigidity [Unknown]
  - Extra dose administered [Unknown]
  - Intentional device misuse [Unknown]
  - Dyskinesia [Not Recovered/Not Resolved]
  - Pneumonia aspiration [Fatal]
  - Pneumonia aspiration [Recovered/Resolved]

NARRATIVE: CASE EVENT DATE: 20210701
